FAERS Safety Report 6830227-0 (Version None)
Quarter: 2010Q3

REPORT INFORMATION
  Report Type: 
  Country: None (occurrence: None)
  Receive Date: 20100711
  Receipt Date: 20100701
  Transmission Date: 20110219
  Serious: Yes (Other)
  Sender: FDA-Public Use
  Company Number: JP-BRISTOL-MYERS SQUIBB COMPANY-15183254

PATIENT
  Age: 65 Year
  Sex: Female

DRUGS (1)
  1. MITOMYCIN [Suspect]
     Indication: BREAST CANCER RECURRENT
     Dosage: INJ

REACTIONS (1)
  - INTERSTITIAL LUNG DISEASE [None]
